FAERS Safety Report 7319554-0 (Version None)
Quarter: 2011Q1

REPORT INFORMATION
  Report Type: 
  Country: None (occurrence: None)
  Receive Date: 20110228
  Receipt Date: 20100518
  Transmission Date: 20110831
  Serious: No
  Sender: FDA-Public Use
  Company Number: A0860232A

PATIENT
  Age: 32 Year
  Sex: Female

DRUGS (2)
  1. NO CONCURRENT MEDICATION [Concomitant]
  2. LAMICTAL [Suspect]
     Indication: BIPOLAR DISORDER
     Dosage: 300MG PER DAY
     Route: 048
     Dates: start: 20031101, end: 20100401

REACTIONS (9)
  - INSOMNIA [None]
  - IRRITABILITY [None]
  - NAUSEA [None]
  - MYALGIA [None]
  - DISABILITY [None]
  - INFLUENZA LIKE ILLNESS [None]
  - DIZZINESS [None]
  - DISTURBANCE IN ATTENTION [None]
  - WITHDRAWAL SYNDROME [None]
